APPROVED DRUG PRODUCT: SUCCINYLCHOLINE CHLORIDE
Active Ingredient: SUCCINYLCHOLINE CHLORIDE
Strength: 20MG/ML
Dosage Form/Route: INJECTABLE;INJECTION
Application: A217808 | Product #001
Applicant: EUGIA PHARMA SPECIALITIES LTD
Approved: Oct 16, 2023 | RLD: No | RS: No | Type: DISCN